FAERS Safety Report 9328631 (Version 1)
Quarter: 2013Q2

REPORT INFORMATION
  Report Type: Spontaneous
  Country: US (occurrence: US)
  Receive Date: 20130604
  Receipt Date: 20130604
  Transmission Date: 20140414
  Serious: No
  Sender: FDA-Public Use
  Company Number: US-SANOFI-AVENTIS-2012SA025979

PATIENT
  Age: 60 Year
  Sex: Female
  Weight: 83 kg

DRUGS (15)
  1. LANTUS [Suspect]
     Indication: DIABETES MELLITUS
     Dosage: DOSE:18 UNIT(S)
     Route: 058
     Dates: start: 2009
  2. METFORMIN [Concomitant]
     Indication: DIABETES MELLITUS
  3. PLAQUENIL [Concomitant]
     Indication: SYSTEMIC LUPUS ERYTHEMATOSUS
     Dosage: TAKES TWO DAILY
     Dates: start: 2005
  4. ALLOPURINOL [Concomitant]
     Indication: GOUT
  5. BENICAR [Concomitant]
     Indication: BLOOD PRESSURE
     Dates: start: 2001
  6. ZOLOFT [Concomitant]
     Indication: DEPRESSION
     Dates: start: 1997
  7. VITAMIN E [Concomitant]
  8. MULTIVITAMINS [Concomitant]
  9. DICYCLOMINE [Concomitant]
     Indication: IRRITABLE BOWEL SYNDROME
     Dosage: TAKES IN THE MORNING
  10. OMEPRAZOLE [Concomitant]
     Indication: GASTROINTESTINAL DISORDER
  11. LEVOTHYROXINE [Concomitant]
     Indication: THYROID DISORDER
     Dates: start: 2010
  12. VITAMIN D [Concomitant]
  13. COLCHICINE [Concomitant]
     Indication: GOUT
  14. WELCHOL [Concomitant]
     Indication: BLOOD CHOLESTEROL
     Dates: start: 2011
  15. LYRICA [Concomitant]
     Indication: FIBROMYALGIA
     Dates: start: 201201

REACTIONS (1)
  - Hepatic steatosis [Not Recovered/Not Resolved]
